FAERS Safety Report 24160025 (Version 1)
Quarter: 2024Q3

REPORT INFORMATION
  Report Type: Spontaneous
  Country: CN (occurrence: CN)
  Receive Date: 20240801
  Receipt Date: 20240801
  Transmission Date: 20241016
  Serious: Yes (Death, Hospitalization)
  Sender: STRIDES
  Company Number: CN-STRIDES ARCOLAB LIMITED-2024SP009374

PATIENT
  Age: 10 Year
  Sex: Female

DRUGS (1)
  1. PROPAFENONE [Suspect]
     Active Substance: PROPAFENONE
     Indication: Product used for unknown indication
     Dosage: 50 DOSAGE FORM (50 TABLETS)
     Route: 048
     Dates: start: 20200916

REACTIONS (13)
  - Bundle branch block right [Fatal]
  - Hypotension [Fatal]
  - Accelerated idioventricular rhythm [Fatal]
  - Electrocardiogram QRS complex prolonged [Fatal]
  - Rhythm idioventricular [Fatal]
  - Toxicity to various agents [Fatal]
  - Intentional overdose [Fatal]
  - Unresponsive to stimuli [Unknown]
  - Ventricular tachycardia [Fatal]
  - Dizziness [Unknown]
  - Vomiting [Unknown]
  - Seizure [Unknown]
  - Confusional state [Unknown]

NARRATIVE: CASE EVENT DATE: 20200916
